FAERS Safety Report 6783671-4 (Version None)
Quarter: 2010Q2

REPORT INFORMATION
  Report Type: 
  Country: None (occurrence: None)
  Receive Date: 20100622
  Receipt Date: 20100616
  Transmission Date: 20101027
  Serious: Yes (Death)
  Sender: FDA-Public Use
  Company Number: DE-ROCHE-708281

PATIENT

DRUGS (2)
  1. CAPECITABINE [Suspect]
     Dosage: FREQUENCY: DAILY. ROUTE REPORTED AS D1-14.
     Route: 065
     Dates: start: 20100601
  2. OXALIPLATIN [Suspect]
     Dosage: FREQUENCY: D1 AND DOSAGE FORM: IV
     Route: 042
     Dates: start: 20100601

REACTIONS (1)
  - PULMONARY EMBOLISM [None]
